FAERS Safety Report 4961672-6 (Version None)
Quarter: 2006Q2

REPORT INFORMATION
  Report Type: 
  Country: None (occurrence: None)
  Receive Date: 20060404
  Receipt Date: 20060323
  Transmission Date: 20061013
  Serious: Yes (Other)
  Sender: FDA-Public Use
  Company Number: US-JNJFOC-20060301326

PATIENT
  Sex: Female
  Weight: 94.8 kg

DRUGS (6)
  1. REMICADE [Suspect]
     Route: 042
  2. SORIATANE [Concomitant]
     Indication: PSORIASIS
  3. LEXAPRO [Concomitant]
     Indication: DEPRESSION
  4. LOPRESSOR [Concomitant]
     Indication: HYPERTENSION
  5. ESTROGENS SOL/INJ [Concomitant]
     Indication: HORMONE REPLACEMENT THERAPY
  6. TRIAM T [Concomitant]
     Indication: HYPERTENSION

REACTIONS (6)
  - CHEST DISCOMFORT [None]
  - CYANOSIS [None]
  - DYSPNOEA [None]
  - INFUSION RELATED REACTION [None]
  - NECK PAIN [None]
  - TREMOR [None]
